FAERS Safety Report 4464665-0 (Version None)
Quarter: 2004Q3

REPORT INFORMATION
  Report Type: 
  Country: None (occurrence: None)
  Receive Date: 20040929
  Receipt Date: 20040920
  Transmission Date: 20050211
  Serious: Yes (Hospitalization)
  Sender: FDA-Public Use
  Company Number: K200401422

PATIENT
  Age: 82 Year

DRUGS (10)
  1. ALTACE [Suspect]
     Dosage: 20 MG, QD, ORAL
     Route: 048
  2. CORVASAL (MOLSIDOMINE) TABLET, 4 MG [Suspect]
     Dosage: 4 MG, ORAL
     Route: 048
  3. ASPEGIC (ACETYLSALICYLATE LYSINE) POWDER (EXCEPT [DPO]), [Suspect]
     Dosage: 100 MG, QD, ORAL
     Route: 048
  4. FLUDEX (INDAPAMIDE) TABLET, 1 U [Suspect]
     Dosage: 1 U, QD, ORAL
     Route: 048
  5. TENORMIN [Suspect]
  6. ATORVASTATIN CALCIUM [Suspect]
     Dosage: ORAL
     Route: 048
  7. ZYLORIC (ALLOPURINOL) [Concomitant]
  8. PROSCAR [Concomitant]
  9. FORLAX (MACROGOL) [Concomitant]
  10. MAXEPA (FISH OIL, EICOSAPENTAENOIC ACID, DOCOSAHEXAENOIC ACID) [Concomitant]

REACTIONS (1)
  - HAEMATOCHEZIA [None]
